FAERS Safety Report 18513537 (Version 3)
Quarter: 2020Q4

REPORT INFORMATION
  Report Type: Spontaneous
  Country: US (occurrence: US)
  Receive Date: 20201117
  Receipt Date: 20201123
  Transmission Date: 20210114
  Serious: Yes (Other)
  Sender: FDA-Public Use
  Company Number: US-PFIZER INC-2020452037

PATIENT
  Sex: Female

DRUGS (4)
  1. ADVIL [IBUPROFEN] [Concomitant]
     Active Substance: IBUPROFEN
  2. CELEBREX [Suspect]
     Active Substance: CELECOXIB
     Dosage: 200 MG(200MG IN THE MORNING)
  3. CELEBREX [Suspect]
     Active Substance: CELECOXIB
     Indication: OSTEOARTHRITIS
     Dosage: 200 MG, 2X/DAY
  4. TYLENOL [Concomitant]
     Active Substance: ACETAMINOPHEN

REACTIONS (7)
  - Headache [Unknown]
  - Panic attack [Unknown]
  - Gastrooesophageal reflux disease [Unknown]
  - Therapeutic product effect delayed [Unknown]
  - Coeliac disease [Unknown]
  - Upper respiratory tract infection [Unknown]
  - Gastric disorder [Unknown]
